FAERS Safety Report 17125502 (Version 1)
Quarter: 2019Q4

REPORT INFORMATION
  Report Type: Other
  Country: US (occurrence: US)
  Receive Date: 20191207
  Receipt Date: 20191207
  Transmission Date: 20200122
  Serious: Yes (Hospitalization)
  Sender: FDA-Public Use
  Company Number: US-LEADING PHARMA, LLC-2077587

PATIENT
  Age: 37 Year
  Sex: Female

DRUGS (1)
  1. LORAZEPAM. [Suspect]
     Active Substance: LORAZEPAM
     Indication: ANXIETY
     Route: 065

REACTIONS (1)
  - Somnolence [Recovering/Resolving]
